FAERS Safety Report 6303174-0 (Version None)
Quarter: 2009Q3

REPORT INFORMATION
  Report Type: 
  Country: None (occurrence: None)
  Receive Date: 20090810
  Receipt Date: 20090522
  Transmission Date: 20100115
  Serious: No
  Sender: FDA-Public Use
  Company Number: A0780005A

PATIENT
  Age: 63 Year
  Sex: Female

DRUGS (1)
  1. PAXIL CR [Suspect]

REACTIONS (3)
  - FEELING HOT [None]
  - HYPERHIDROSIS [None]
  - NIGHT SWEATS [None]
